FAERS Safety Report 7409525-8 (Version None)
Quarter: 2011Q2

REPORT INFORMATION
  Report Type: 
  Country: None (occurrence: None)
  Receive Date: 20110407
  Receipt Date: 20110407
  Transmission Date: 20111010
  Serious: Yes (Hospitalization)
  Sender: FDA-Public Use
  Company Number: None

PATIENT
  Sex: Female
  Weight: 34.5 kg

DRUGS (7)
  1. PEG-L-ASPARAGINASE (PEGASPARGASE, ONCOSPAR) [Suspect]
     Dosage: 131 MG
     Dates: end: 20110207
  2. MERCAPTOPURINE [Suspect]
     Dosage: 1950 MG
     Dates: end: 20110306
  3. VINCRISTINE SULFATE [Suspect]
     Dosage: 6.8 MG
     Dates: end: 20110314
  4. CYCLOPHOSPHAMIDE [Suspect]
     Dosage: 2320 MG
     Dates: end: 20110221
  5. ERWINIA ASPARAGINASE [Suspect]
     Dosage: 174000 MG
     Dates: end: 20110318
  6. METHOTREXATE [Suspect]
     Dosage: 45 MG
     Dates: end: 20110207
  7. CYTARABINE [Suspect]
     Dosage: 1392 MG
     Dates: end: 20110303

REACTIONS (2)
  - HYPERSENSITIVITY [None]
  - HYPERGLYCAEMIA [None]
